FAERS Safety Report 6462374-X (Version None)
Quarter: 2009Q4

REPORT INFORMATION
  Report Type: 
  Country: None (occurrence: None)
  Receive Date: 20091130
  Receipt Date: 20091118
  Transmission Date: 20100525
  Serious: Yes (Hospitalization)
  Sender: FDA-Public Use
  Company Number: JP-ASTRAZENECA-2009SE22929

PATIENT
  Sex: Male
  Weight: 65 kg

DRUGS (11)
  1. BLOPRESS [Suspect]
     Indication: HYPERTENSION
     Route: 048
     Dates: start: 20060822, end: 20090211
  2. BLOPRESS [Suspect]
     Route: 048
     Dates: start: 20090415, end: 20091027
  3. BLOPRESS [Suspect]
     Route: 048
     Dates: start: 20091028
  4. FLUITRAN [Concomitant]
     Route: 048
  5. GLYCORAN [Concomitant]
     Route: 048
  6. TANATRIL [Concomitant]
     Route: 048
  7. ASPIRIN [Concomitant]
     Route: 048
  8. CINALONG [Concomitant]
     Route: 048
  9. PLAVIX [Concomitant]
     Route: 048
  10. ARTIST [Concomitant]
     Route: 048
  11. HUMALOG MIX 50 [Concomitant]
     Dosage: THREE TIMES A DAY
     Route: 058

REACTIONS (2)
  - CEREBRAL INFARCTION [None]
  - MYOCARDIAL ISCHAEMIA [None]
